FAERS Safety Report 14723260 (Version 1)
Quarter: 2018Q2

REPORT INFORMATION
  Report Type: Spontaneous
  Country: US (occurrence: US)
  Receive Date: 20180405
  Receipt Date: 20180405
  Transmission Date: 20180711
  Serious: Yes (Other)
  Sender: FDA-Public Use
  Company Number: US-PFIZER INC-2018137426

PATIENT
  Age: 60 Year
  Sex: Male
  Weight: 92.8 kg

DRUGS (1)
  1. ADVIL LIQUI-GELS [Suspect]
     Active Substance: IBUPROFEN
     Dosage: UNK, 1X/DAY(I BELIEVE IT IS 200 MG)

REACTIONS (4)
  - Stomatitis [Recovered/Resolved]
  - Poor quality drug administered [Unknown]
  - Burn oral cavity [Recovered/Resolved]
  - Intentional product misuse [Unknown]

NARRATIVE: CASE EVENT DATE: 20180401
